FAERS Safety Report 6655778-3 (Version None)
Quarter: 2010Q1

REPORT INFORMATION
  Report Type: 
  Country: None (occurrence: None)
  Receive Date: 20100329
  Receipt Date: 20100319
  Transmission Date: 20100710
  Serious: Yes (Life-Threatening)
  Sender: FDA-Public Use
  Company Number: NO-ABBOTT-10P-122-0627401-00

PATIENT
  Sex: Male

DRUGS (8)
  1. NIMBEX [Suspect]
     Indication: ENDOTRACHEAL INTUBATION
     Route: 065
     Dates: start: 20100121, end: 20100121
  2. ATACAND [Interacting]
     Indication: DRUG USE FOR UNKNOWN INDICATION
     Route: 048
  3. PROPOFOL [Interacting]
     Indication: DRUG USE FOR UNKNOWN INDICATION
     Route: 042
     Dates: start: 20100111, end: 20100111
  4. PROPOFOL [Interacting]
     Route: 042
     Dates: start: 20100121, end: 20100121
  5. FENTANYL [Concomitant]
     Indication: STUPOR
     Route: 065
     Dates: start: 20100121, end: 20100121
  6. SIMVASTATIN-RATIOPHARM [Concomitant]
     Indication: DRUG USE FOR UNKNOWN INDICATION
     Route: 048
  7. SAROTEX [Concomitant]
     Indication: DRUG USE FOR UNKNOWN INDICATION
     Route: 048
  8. SELO-ZOK [Concomitant]
     Indication: DRUG USE FOR UNKNOWN INDICATION
     Route: 048

REACTIONS (2)
  - DRUG INTERACTION [None]
  - HYPOTENSION [None]
